FAERS Safety Report 5833041-8 (Version None)
Quarter: 2008Q3

REPORT INFORMATION
  Report Type: 
  Country: None (occurrence: None)
  Receive Date: 20080805
  Receipt Date: 20080722
  Transmission Date: 20090109
  Serious: Yes (Hospitalization)
  Sender: FDA-Public Use
  Company Number: JP-ASTRAZENECA-2008AP04853

PATIENT
  Age: 48 Year
  Sex: Male
  Weight: 62 kg

DRUGS (5)
  1. CRESTOR [Suspect]
     Indication: HYPERCHOLESTEROLAEMIA
     Route: 048
     Dates: start: 20071211
  2. AMARYL [Suspect]
     Indication: DIABETES MELLITUS
     Dosage: 1-2 MG PER DOSE
     Route: 048
     Dates: start: 20061001
  3. NORVASC [Suspect]
     Indication: HYPERTENSION
     Route: 048
     Dates: start: 20080514, end: 20080613
  4. BASEN OD [Concomitant]
     Indication: DIABETES MELLITUS
     Route: 048
     Dates: start: 20061001
  5. CALBLOCK [Concomitant]
     Indication: HYPERTENSION
     Route: 048
     Dates: start: 20080614

REACTIONS (2)
  - CEREBROVASCULAR ACCIDENT [None]
  - GYNAECOMASTIA [None]
